FAERS Safety Report 9649674 (Version 3)
Quarter: 2014Q1

REPORT INFORMATION
  Report Type: Spontaneous
  Country: AT (occurrence: AT)
  Receive Date: 20131028
  Receipt Date: 20140218
  Transmission Date: 20141002
  Serious: Yes (Other)
  Sender: FDA-Public Use
  Company Number: AT-B.I. PHARMACEUTICALS,INC./RIDGEFIELD-2013-BI-34442BE

PATIENT
  Age: 23 Year
  Sex: Male

DRUGS (36)
  1. CATAPRESAN [Suspect]
     Indication: PRODUCT USED FOR UNKNOWN INDICATION
     Dosage: DOSE PER APPLICATION:1.2
     Route: 048
     Dates: start: 20130621, end: 20130621
  2. CATAPRESAN [Suspect]
     Dosage: DOSE PER APPLICATION:1.5
     Route: 048
     Dates: start: 20130622, end: 20130624
  3. CATAPRESAN [Suspect]
     Dosage: DOSE PER APPLICATION:1.2
     Route: 048
     Dates: start: 20130625, end: 20130626
  4. CATAPRESAN [Suspect]
     Dosage: DOSE PER APPLICATION:0.9
     Route: 048
     Dates: start: 20130627, end: 20130627
  5. CATAPRESAN [Suspect]
     Route: 065
     Dates: start: 20130628
  6. XEPLION [Suspect]
     Indication: PRODUCT USED FOR UNKNOWN INDICATION
     Route: 030
     Dates: start: 20130627, end: 20130627
  7. XEPLION [Suspect]
     Route: 030
  8. CISORDINOL ACUTARD [Suspect]
     Indication: PRODUCT USED FOR UNKNOWN INDICATION
     Route: 030
     Dates: start: 20130617, end: 20130617
  9. CISORDINOL ACUTARD [Suspect]
     Route: 030
     Dates: start: 20130620, end: 20130620
  10. CISORDINOL ACUTARD [Suspect]
     Route: 030
     Dates: start: 20130624, end: 20130624
  11. CISORDINOL ACUTARD [Suspect]
     Route: 030
     Dates: start: 20130630, end: 20130630
  12. RISPERDAL [Suspect]
     Indication: PRODUCT USED FOR UNKNOWN INDICATION
     Route: 048
     Dates: start: 20130515, end: 20130520
  13. RISPERDAL [Suspect]
     Route: 048
     Dates: start: 20130521, end: 20130627
  14. RISPERDAL [Suspect]
     Dosage: 8 MG
     Route: 048
     Dates: start: 20130628, end: 20130629
  15. RISPERDAL [Suspect]
     Dosage: 6 MG
     Route: 048
     Dates: start: 20130630
  16. RISPERDAL [Suspect]
     Dosage: 12 MG
     Route: 048
     Dates: start: 20130514
  17. SEROQUEL [Suspect]
     Indication: PRODUCT USED FOR UNKNOWN INDICATION
     Route: 048
     Dates: start: 20130521, end: 20130522
  18. SEROQUEL [Suspect]
     Dosage: 600 MG
     Route: 048
     Dates: start: 20130523, end: 20130523
  19. SEROQUEL [Suspect]
     Dosage: 1000 MG
     Route: 048
     Dates: start: 20130618, end: 20130625
  20. SEROQUEL [Suspect]
     Dosage: 1500 MG
     Route: 048
     Dates: start: 20130626, end: 20130626
  21. SEROQUEL [Suspect]
     Dosage: 1500 MG
     Route: 030
     Dates: start: 20130627
  22. TEMESTA [Suspect]
     Indication: PRODUCT USED FOR UNKNOWN INDICATION
     Route: 048
     Dates: start: 20130612, end: 20130612
  23. TEMESTA [Suspect]
     Route: 048
     Dates: start: 20130613, end: 20130623
  24. TEMESTA [Suspect]
     Route: 048
     Dates: start: 20130624, end: 20130624
  25. TEMESTA [Suspect]
     Route: 048
     Dates: start: 20130625, end: 20130626
  26. TEMESTA [Suspect]
     Route: 048
     Dates: start: 20130627, end: 20130627
  27. DORMICUM [Concomitant]
     Dosage: PERFUSOR;5 TO 10 MG/H
     Route: 065
     Dates: start: 20130520, end: 20130623
  28. RISPERDAL CONSTA [Concomitant]
     Dosage: 50 MG
     Route: 030
     Dates: start: 20130527, end: 20130527
  29. RISPERDAL CONSTA [Concomitant]
     Dosage: 100 MG
     Route: 030
     Dates: start: 20130606, end: 20130606
  30. NEXIUM [Concomitant]
     Dosage: 20 DAILY
     Route: 048
     Dates: start: 20130613, end: 20130624
  31. NEXIUM [Concomitant]
     Dosage: 12.5 MG
     Route: 065
     Dates: start: 20130613, end: 20130623
  32. GEWACALM [Concomitant]
     Dosage: 10,DAILY
     Route: 042
     Dates: start: 20130615, end: 20130623
  33. NOZINAN [Concomitant]
     Route: 065
  34. DEPAKINE CRONO [Concomitant]
     Route: 065
  35. HALDOL [Concomitant]
     Route: 065
  36. RIVOTRIL [Concomitant]
     Route: 065

REACTIONS (5)
  - Shock [Recovered/Resolved]
  - Hypotension [Recovered/Resolved]
  - Muscle tightness [Recovered/Resolved]
  - Nausea [Recovered/Resolved]
  - Pyrexia [Recovered/Resolved]
